APPROVED DRUG PRODUCT: TENOFOVIR DISOPROXIL FUMARATE
Active Ingredient: TENOFOVIR DISOPROXIL FUMARATE
Strength: 300MG
Dosage Form/Route: TABLET;ORAL
Application: A209550 | Product #001
Applicant: CHARTWELL RX SCIENCES LLC
Approved: Feb 26, 2018 | RLD: No | RS: No | Type: DISCN